FAERS Safety Report 7226907-8 (Version None)
Quarter: 2011Q1

REPORT INFORMATION
  Report Type: 
  Country: None (occurrence: None)
  Receive Date: 20110114
  Receipt Date: 20110112
  Transmission Date: 20110831
  Serious: Yes (Other)
  Sender: FDA-Public Use
  Company Number: DE-ROXANE LABORATORIES, INC.-2011-RO-00056RO

PATIENT
  Age: 31 Year
  Sex: Male

DRUGS (5)
  1. RISPERIDONE [Suspect]
     Indication: SCHIZOPHRENIA
  2. LEVOMEPROMAZINE [Suspect]
     Dosage: 50 MG
  3. LORAZEPAM [Suspect]
     Dosage: 4 MG
  4. FLUPHENAZINE [Suspect]
     Indication: SCHIZOPHRENIA
  5. MIRTAZAPINE [Suspect]
     Dosage: 45 MG

REACTIONS (1)
  - HYPERGLYCAEMIA [None]
